FAERS Safety Report 9707354 (Version 1)
Quarter: 2013Q4

REPORT INFORMATION
  Report Type: Spontaneous
  Country: US (occurrence: US)
  Receive Date: 20131125
  Receipt Date: 20131125
  Transmission Date: 20140711
  Serious: No
  Sender: FDA-Public Use
  Company Number: US-GLAXOSMITHKLINE-A1031558A

PATIENT
  Sex: Male

DRUGS (1)
  1. FLOVENT [Suspect]
     Indication: LARYNGITIS
     Route: 055
     Dates: start: 201306

REACTIONS (2)
  - Off label use [Unknown]
  - Therapeutic response unexpected [Unknown]
